FAERS Safety Report 12902088 (Version 2)
Quarter: 2016Q4

REPORT INFORMATION
  Report Type: Other
  Country: DK (occurrence: DK)
  Receive Date: 20161102
  Receipt Date: 20161111
  Transmission Date: 20170207
  Serious: Yes (Death, Other)
  Sender: FDA-Public Use
  Company Number: DK-GLENMARK PHARMACEUTICALS INC, USA.-2016GMK024784

PATIENT

DRUGS (10)
  1. ANAFRANIL [Suspect]
     Active Substance: CLOMIPRAMINE HYDROCHLORIDE
     Indication: DEPRESSION
     Dosage: 25 MG, QD
     Route: 048
     Dates: start: 20140101
  2. OLANZAPINE. [Suspect]
     Active Substance: OLANZAPINE
     Indication: DEPRESSION
     Dosage: 15 MG, QD
     Route: 048
  3. OLANZAPINE. [Suspect]
     Active Substance: OLANZAPINE
     Dosage: 10 MG, QD
     Route: 048
     Dates: start: 20150101
  4. ANAFRANIL [Suspect]
     Active Substance: CLOMIPRAMINE HYDROCHLORIDE
     Indication: DEPRESSION
     Dosage: 75 MG, QD
     Route: 048
     Dates: start: 20140101
  5. LITHIUM. [Suspect]
     Active Substance: LITHIUM
     Dosage: 600 MG, QD
     Route: 048
     Dates: start: 20160408
  6. ANAFRANIL [Suspect]
     Active Substance: CLOMIPRAMINE HYDROCHLORIDE
     Dosage: 125 MG, QD
     Route: 065
     Dates: start: 201603
  7. OLANZAPINE. [Suspect]
     Active Substance: OLANZAPINE
     Dosage: 2.5 MG, QD
     Route: 048
  8. LITHIUM. [Suspect]
     Active Substance: LITHIUM
     Indication: MOOD SWINGS
     Dosage: 900 MG, QD
     Route: 048
     Dates: end: 201507
  9. LITHIUM. [Suspect]
     Active Substance: LITHIUM
     Dosage: 900 MG, QD
     Route: 048
     Dates: start: 20160329
  10. OLANZAPINE. [Suspect]
     Active Substance: OLANZAPINE
     Dosage: 10 MG, QD
     Route: 048
     Dates: start: 20150324

REACTIONS (4)
  - Nausea [Not Recovered/Not Resolved]
  - Cardiogenic shock [Fatal]
  - Chest discomfort [Not Recovered/Not Resolved]
  - Discomfort [Not Recovered/Not Resolved]

NARRATIVE: CASE EVENT DATE: 20160416
